FAERS Safety Report 9743800 (Version 2)
Quarter: 2013Q4

REPORT INFORMATION
  Report Type: Report from Study
  Country: NL (occurrence: NL)
  Receive Date: 20131210
  Receipt Date: 20131210
  Transmission Date: 20140711
  Serious: Yes (Hospitalization)
  Sender: FDA-Public Use
  Company Number: PHHY2013NL129509

PATIENT
  Age: 57 Year
  Sex: Male

DRUGS (3)
  1. ZOMETA [Suspect]
     Indication: PLASMA CELL MYELOMA
     Dosage: 4 MG/100, PER 4 WEEKS
     Route: 042
  2. ZOMETA [Suspect]
     Dosage: 4 MG/100, PER 4 WEEKS
     Route: 042
     Dates: start: 20120426
  3. ZOMETA [Suspect]
     Dosage: 4 MG/100, PER 4 WEEKS
     Route: 042
     Dates: start: 20131015

REACTIONS (3)
  - Pneumonia [Unknown]
  - Thrombosis [Unknown]
  - Dyspnoea [Not Recovered/Not Resolved]
